FAERS Safety Report 6120050-7 (Version None)
Quarter: 2009Q1

REPORT INFORMATION
  Report Type: 
  Country: None (occurrence: None)
  Receive Date: 20090316
  Receipt Date: 20090309
  Transmission Date: 20090719
  Serious: Yes (Other)
  Sender: FDA-Public Use
  Company Number: US-AMGEN-QUU337640

PATIENT
  Sex: Female

DRUGS (2)
  1. ENBREL [Suspect]
     Indication: RHEUMATOID ARTHRITIS
     Route: 058
  2. UNSPECIFIED MEDICATION [Concomitant]

REACTIONS (6)
  - BLINDNESS UNILATERAL [None]
  - DRUG INEFFECTIVE [None]
  - INJECTION SITE PAIN [None]
  - PAIN IN EXTREMITY [None]
  - RHEUMATOID ARTHRITIS [None]
  - VISUAL IMPAIRMENT [None]
